FAERS Safety Report 20844304 (Version 1)
Quarter: 2022Q2

REPORT INFORMATION
  Report Type: Spontaneous
  Country: US (occurrence: US)
  Receive Date: 20220518
  Receipt Date: 20220518
  Transmission Date: 20220721
  Serious: No
  Sender: FDA-Public Use
  Company Number: US-PFIZER INC-202200110156

PATIENT
  Age: 12 Year
  Sex: Male
  Weight: 43.09 kg

DRUGS (2)
  1. GENOTROPIN [Suspect]
     Active Substance: SOMATROPIN
     Indication: Osteogenesis imperfecta
     Dosage: 1.3 MG, DAILY (1.3 UNDER SKIN DAILY)
  2. GENOTROPIN [Suspect]
     Active Substance: SOMATROPIN
     Dosage: 1.4 MG, DAILY

REACTIONS (4)
  - Device issue [Unknown]
  - Poor quality device used [Unknown]
  - Product prescribing error [Unknown]
  - Off label use [Unknown]
